FAERS Safety Report 9999076 (Version 1)
Quarter: 2014Q1

REPORT INFORMATION
  Report Type: Spontaneous
  Country: US (occurrence: None)
  Receive Date: 20140311
  Receipt Date: 20140311
  Transmission Date: 20141002
  Serious: No
  Sender: FDA-Public Use
  Company Number: None

PATIENT
  Age: 64 Year
  Sex: Male
  Weight: 89.81 kg

DRUGS (2)
  1. ALFUZOSIN TAB, 10 MG, SUN PHARMA [Suspect]
     Indication: URINE FLOW DECREASED
     Dosage: TAKEN BY MOUTH
  2. ALFUZOSIN TAB, 10 MG, SUN PHARMA [Suspect]
     Indication: PAIN MANAGEMENT
     Dosage: TAKEN BY MOUTH

REACTIONS (5)
  - Product physical issue [None]
  - Urine flow decreased [None]
  - Dysuria [None]
  - Product quality issue [None]
  - Product substitution issue [None]
